FAERS Safety Report 14364348 (Version 6)
Quarter: 2018Q2

REPORT INFORMATION
  Report Type: Report from Study
  Country: GB (occurrence: GB)
  Receive Date: 20180108
  Receipt Date: 20180412
  Transmission Date: 20180711
  Serious: Yes (Other)
  Sender: FDA-Public Use
  Company Number: GB-PFIZER INC-2018001456

PATIENT
  Age: 38 Month

DRUGS (4)
  1. MELPHALAN. [Suspect]
     Active Substance: MELPHALAN
     Indication: RETINOBLASTOMA
     Dosage: 5 MG, CYCLIC (3)
     Route: 013
  2. MELPHALAN. [Suspect]
     Active Substance: MELPHALAN
     Dosage: 5 MG, CYCLIC (3)
     Route: 013
  3. TOPOTECAN HYDROCHLORIDE. [Suspect]
     Active Substance: TOPOTECAN HYDROCHLORIDE
     Indication: RETINOBLASTOMA
     Dosage: 1 MG, CYCLIC (1, 2, 3)
     Route: 013
  4. MELPHALAN. [Suspect]
     Active Substance: MELPHALAN
     Dosage: 5 MG, CYCLIC (3)
     Route: 013

REACTIONS (2)
  - Ocular vascular disorder [Unknown]
  - VIth nerve paralysis [Unknown]
